FAERS Safety Report 22394829 (Version 1)
Quarter: 2023Q2

REPORT INFORMATION
  Report Type: Spontaneous
  Country: US (occurrence: None)
  Receive Date: 20230531
  Receipt Date: 20230531
  Transmission Date: 20230721
  Serious: No
  Sender: FDA-Public Use
  Company Number: None

PATIENT
  Sex: Male

DRUGS (14)
  1. PROLIA [Suspect]
     Active Substance: DENOSUMAB
     Indication: Rheumatoid arthritis
     Dosage: OTHER FREQUENCY : Q6MONTHS;?
     Route: 058
  2. PREDNISONE [Concomitant]
     Active Substance: PREDNISONE
  3. BETAMETHASONE [Concomitant]
     Active Substance: BETAMETHASONE
  4. ELIQUIS [Concomitant]
     Active Substance: APIXABAN
  5. SINGULAR [Concomitant]
  6. OLOPATADINE [Concomitant]
  7. METHOTREXATE [Concomitant]
  8. MYRBETRIQ [Concomitant]
     Active Substance: MIRABEGRON
  9. CEFADROXIL [Concomitant]
  10. MUPIROCIN [Concomitant]
     Active Substance: MUPIROCIN
  11. CLOTRIMAZOLE [Concomitant]
  12. ZITHROMAX [Concomitant]
     Active Substance: AZITHROMYCIN DIHYDRATE
  13. NYSTATIN [Concomitant]
     Active Substance: NYSTATIN
  14. FOLIC ACID [Concomitant]

REACTIONS (1)
  - Post procedural infection [None]
